FAERS Safety Report 12882343 (Version 1)
Quarter: 2016Q4

REPORT INFORMATION
  Report Type: Report from Study
  Country: CA (occurrence: CA)
  Receive Date: 20161025
  Receipt Date: 20161025
  Transmission Date: 20170207
  Serious: Yes (Other)
  Sender: FDA-Public Use
  Company Number: CA-JNJFOC-20161014558

PATIENT
  Age: 32 Year
  Sex: Male
  Weight: 74.84 kg

DRUGS (2)
  1. REMICADE [Suspect]
     Active Substance: INFLIXIMAB
     Indication: CROHN^S DISEASE
     Route: 042
     Dates: start: 20150206
  2. REMICADE [Suspect]
     Active Substance: INFLIXIMAB
     Indication: CROHN^S DISEASE
     Dosage: 14TH INFUSION
     Route: 042
     Dates: start: 20161017

REACTIONS (6)
  - Back pain [Unknown]
  - Infusion related reaction [Unknown]
  - Diarrhoea [Unknown]
  - Flank pain [Unknown]
  - Abdominal pain [Not Recovered/Not Resolved]
  - Rash pustular [Recovered/Resolved]

NARRATIVE: CASE EVENT DATE: 20161016
